FAERS Safety Report 19352854 (Version 9)
Quarter: 2022Q3

REPORT INFORMATION
  Report Type: Report from Study
  Country: US (occurrence: US)
  Receive Date: 20210601
  Receipt Date: 20220730
  Transmission Date: 20221027
  Serious: Yes (Hospitalization, Other)
  Sender: FDA-Public Use
  Company Number: US-TAKEDA-2021TUS034173

PATIENT
  Sex: Female
  Weight: 63 kg

DRUGS (5)
  1. HUMAN IMMUNOGLOBULIN G [Suspect]
     Active Substance: HUMAN IMMUNOGLOBULIN G
     Indication: Immunodeficiency common variable
     Dosage: 20 GRAM, 1/WEEK
     Route: 058
     Dates: start: 20210505
  2. ACETAMINOPHEN [Concomitant]
     Active Substance: ACETAMINOPHEN
     Route: 065
  3. DIPHENHYDRAMINE [Concomitant]
     Active Substance: DIPHENHYDRAMINE
     Route: 065
  4. EPINEPHRINE [Concomitant]
     Active Substance: EPINEPHRINE
     Route: 065
  5. SINGULAIR [Concomitant]
     Active Substance: MONTELUKAST SODIUM
     Route: 065

REACTIONS (12)
  - Small intestinal haemorrhage [Unknown]
  - Cholangitis [Unknown]
  - Scoliosis [Unknown]
  - Pneumonia [Unknown]
  - Norovirus infection [Unknown]
  - Bacteraemia [Unknown]
  - Lung neoplasm [Unknown]
  - Gastrointestinal haemorrhage [Unknown]
  - Hepatic infection [Unknown]
  - Product tampering [Unknown]
  - Product dose omission issue [Unknown]
  - Product use in unapproved indication [Unknown]
